FAERS Safety Report 11687631 (Version 1)
Quarter: 2015Q4

REPORT INFORMATION
  Report Type: Spontaneous
  Country: DE (occurrence: DE)
  Receive Date: 20151030
  Receipt Date: 20151030
  Transmission Date: 20160304
  Serious: Yes (Other)
  Sender: FDA-Public Use
  Company Number: DE-PFIZER INC-2015360839

PATIENT

DRUGS (6)
  1. MISOPROSTOL. [Concomitant]
     Active Substance: MISOPROSTOL
     Indication: LABOUR INDUCTION
     Dosage: UNK, 38.1. - 38.1. GESTATIONAL WEEK
     Route: 064
     Dates: start: 20150702, end: 20150702
  2. PROGESTERON [Concomitant]
     Indication: PROPHYLAXIS OF ABORTION
     Dosage: 200 MG, 1X/DAY, 1.6. - 12. GESTATIONAL WEEK
     Route: 064
     Dates: start: 20141021, end: 20141231
  3. ZIPRASIDONE HCL [Suspect]
     Active Substance: ZIPRASIDONE HYDROCHLORIDE
     Indication: PSYCHOTIC DISORDER
     Dosage: 80 MG, DAILY, 0. - 38.5. GESTATIONAL WEEK
     Route: 064
     Dates: start: 20141007, end: 20150706
  4. FEMIBION /07499601/ [Concomitant]
     Indication: PROPHYLAXIS OF NEURAL TUBE DEFECT
     Dosage: UNK, 0. - 38. GESTATIONAL WEEK
     Route: 064
     Dates: start: 20141008, end: 20150701
  5. ESTRIFAM /00045401/ [Concomitant]
     Indication: PROPHYLAXIS OF ABORTION
     Dosage: UNK
     Route: 064
     Dates: start: 20141021, end: 20141231
  6. CLEXANE [Concomitant]
     Active Substance: ENOXAPARIN SODIUM
     Indication: COAGULOPATHY
     Dosage: 40 MG, 1X/DAY, 2.5. - 12. GESTATIONAL WEEK
     Route: 064
     Dates: start: 20141027, end: 20141231

REACTIONS (3)
  - Foetal heart rate deceleration abnormality [Unknown]
  - Maternal exposure during pregnancy [Unknown]
  - Small for dates baby [Recovered/Resolved]

NARRATIVE: CASE EVENT DATE: 20150706
